FAERS Safety Report 7070638-4 (Version None)
Quarter: 2010Q4

REPORT INFORMATION
  Report Type: 
  Country: None (occurrence: None)
  Receive Date: 20101029
  Receipt Date: 20101019
  Transmission Date: 20110411
  Serious: Yes (Other)
  Sender: FDA-Public Use
  Company Number: SE-PFIZER INC-2010132299

PATIENT
  Age: 53 Year
  Sex: Male

DRUGS (2)
  1. CAVERJECT [Suspect]
     Dosage: 2.5 UG, UNK
  2. CAVERJECT [Suspect]
     Dosage: 20 UG, UNK

REACTIONS (4)
  - NAUSEA [None]
  - PENILE PAIN [None]
  - PENIS DISORDER [None]
  - PRESYNCOPE [None]
